FAERS Safety Report 19723654 (Version 1)
Quarter: 2021Q3

REPORT INFORMATION
  Report Type: Spontaneous
  Country: FR (occurrence: FR)
  Receive Date: 20210819
  Receipt Date: 20210819
  Transmission Date: 20211014
  Serious: Yes (Life-Threatening)
  Sender: FDA-Public Use
  Company Number: NVSC2021FR186575

PATIENT
  Age: 46 Year
  Sex: Male

DRUGS (5)
  1. LINEZOLID. [Suspect]
     Active Substance: LINEZOLID
     Indication: OSTEITIS
     Dosage: 1200 MG (600 MG X 2/J)
     Route: 048
     Dates: start: 20210616, end: 20210625
  2. BACTRIM [Suspect]
     Active Substance: SULFAMETHOXAZOLE\TRIMETHOPRIM
     Indication: OSTEITIS
     Dosage: 2 DF
     Route: 048
     Dates: start: 20210625, end: 20210710
  3. CEFEPIME [Suspect]
     Active Substance: CEFEPIME HYDROCHLORIDE
     Indication: OSTEITIS
     Dosage: 2 G, Q8H (2G TOUTES LES 8 HEURES)
     Route: 042
     Dates: start: 20210625, end: 20210628
  4. DAPTOMYCINE [Suspect]
     Active Substance: DAPTOMYCIN
     Indication: OSTEITIS
     Dosage: 750 MG, QD (750 MG/J)
     Route: 042
     Dates: start: 20210628, end: 20210710
  5. PIPERACILLIN AND TAZOBACTAM [Suspect]
     Active Substance: PIPERACILLIN SODIUM\TAZOBACTAM SODIUM
     Indication: OSTEITIS
     Dosage: 1 DF, Q8H (4G/500MG TOUTES LES 8 HEURES)
     Route: 042
     Dates: start: 20210616, end: 20210710

REACTIONS (1)
  - Drug reaction with eosinophilia and systemic symptoms [Recovered/Resolved]

NARRATIVE: CASE EVENT DATE: 20210710
